FAERS Safety Report 14773056 (Version 5)
Quarter: 2018Q4

REPORT INFORMATION
  Report Type: Spontaneous
  Country: KR (occurrence: KR)
  Receive Date: 20180418
  Receipt Date: 20181113
  Transmission Date: 20190204
  Serious: Yes (Death, Hospitalization)
  Sender: FDA-Public Use
  Company Number: KR-ROCHE-2107133

PATIENT
  Age: 82 Year
  Sex: Female

DRUGS (3)
  1. BONVIVA [Suspect]
     Active Substance: IBANDRONATE SODIUM
     Indication: OSTEOPOROSIS
     Route: 042
  2. CEFUROXIME. [Concomitant]
     Active Substance: CEFUROXIME
  3. ACECLOFENAC [Concomitant]
     Active Substance: ACECLOFENAC

REACTIONS (5)
  - Acute kidney injury [Fatal]
  - Dizziness [Unknown]
  - Pruritus generalised [Unknown]
  - Joint swelling [Unknown]
  - Incontinence [Unknown]
